FAERS Safety Report 7597965-6 (Version None)
Quarter: 2011Q3

REPORT INFORMATION
  Report Type: 
  Country: None (occurrence: None)
  Receive Date: 20110708
  Receipt Date: 20110629
  Transmission Date: 20111222
  Serious: Yes (Hospitalization)
  Sender: FDA-Public Use
  Company Number: IT-JNJFOC-20110610088

PATIENT
  Sex: Male

DRUGS (1)
  1. MILICONGAS [Suspect]
     Indication: CONSTIPATION
     Route: 048
     Dates: start: 20110608, end: 20110608

REACTIONS (1)
  - URTICARIA [None]
